FAERS Safety Report 7809236-0 (Version None)
Quarter: 2011Q4

REPORT INFORMATION
  Report Type: 
  Country: None (occurrence: None)
  Receive Date: 20111012
  Receipt Date: 20111005
  Transmission Date: 20120403
  Serious: Yes (Other)
  Sender: FDA-Public Use
  Company Number: US-MYLANLABS-2011S1020686

PATIENT
  Age: 23 Year
  Sex: Male
  Weight: 68.04 kg

DRUGS (4)
  1. FENTANYL-100 [Suspect]
     Dates: end: 20110901
  2. FENTANYL-100 [Suspect]
     Dates: end: 20110901
  3. SUBOXONE [Suspect]
     Dates: end: 20110901
  4. FENTANYL-100 [Suspect]
     Dates: end: 20110901

REACTIONS (6)
  - SOCIAL AVOIDANT BEHAVIOUR [None]
  - INTENTIONAL DRUG MISUSE [None]
  - THINKING ABNORMAL [None]
  - DECREASED APPETITE [None]
  - WEIGHT DECREASED [None]
  - DRUG ABUSE [None]
